FAERS Safety Report 8836526 (Version 1)
Quarter: 2012Q4

REPORT INFORMATION
  Report Type: Spontaneous
  Country: US (occurrence: None)
  Receive Date: 20121009
  Receipt Date: 20121009
  Transmission Date: 20130627
  Serious: Yes (Hospitalization, Other)
  Sender: FDA-Public Use
  Company Number: BR12-285-AE

PATIENT
  Age: 59 Year
  Sex: Male
  Weight: 79.38 kg

DRUGS (7)
  1. SPIRONOLACTONE [Suspect]
     Route: 048
  2. ULORIC [Concomitant]
  3. VERAPAMIL [Concomitant]
  4. PANTOPRAZOLE [Concomitant]
  5. PREDNISONE [Concomitant]
  6. MAGNESIUM [Concomitant]
  7. PRAVASTATIN [Concomitant]

REACTIONS (2)
  - Ulcer haemorrhage [None]
  - Cerebrovascular accident [None]
